FAERS Safety Report 24413837 (Version 1)
Quarter: 2024Q4

REPORT INFORMATION
  Report Type: Report from Study
  Country: US (occurrence: US)
  Receive Date: 20241008
  Receipt Date: 20241008
  Transmission Date: 20250114
  Serious: No
  Sender: TG THERAPEUTICS
  Company Number: US-TG THERAPEUTICS INC.-TGT003861

PATIENT

DRUGS (1)
  1. UBLITUXIMAB [Suspect]
     Active Substance: UBLITUXIMAB
     Indication: Multiple sclerosis
     Dosage: UNK
     Route: 042
     Dates: start: 20240320, end: 20240320

REACTIONS (5)
  - Gastroenteritis viral [Unknown]
  - Cough [Unknown]
  - Nasal congestion [Unknown]
  - Chills [Unknown]
  - Sinusitis [Unknown]

NARRATIVE: CASE EVENT DATE: 20240101
